FAERS Safety Report 25525750 (Version 2)
Quarter: 2025Q4

REPORT INFORMATION
  Report Type: Spontaneous
  Country: EU (occurrence: EU)
  Receive Date: 20250707
  Receipt Date: 20251015
  Transmission Date: 20260117
  Serious: Yes (Death, Hospitalization, Other)
  Sender: MERCK SHARP & DOHME LLC
  Company Number: EU-009507513-2304075

PATIENT
  Age: 62 Year
  Sex: Female

DRUGS (6)
  1. KEYTRUDA [Suspect]
     Active Substance: PEMBROLIZUMAB
     Indication: Cervix carcinoma stage III
     Dosage: C1
     Route: 065
     Dates: start: 20250416, end: 20250416
  2. KEYTRUDA [Suspect]
     Active Substance: PEMBROLIZUMAB
     Indication: Cervix carcinoma stage III
     Route: 065
     Dates: start: 20250506, end: 20250506
  3. CARBOPLATIN [Suspect]
     Active Substance: CARBOPLATIN
     Indication: Cervix carcinoma stage III
     Dosage: C2
     Dates: start: 20250422, end: 20250422
  4. CISPLATIN [Suspect]
     Active Substance: CISPLATIN
     Indication: Cervix carcinoma stage III
     Dosage: C1
     Dates: start: 20250416, end: 20250416
  5. CISPLATIN [Suspect]
     Active Substance: CISPLATIN
     Indication: Cervix carcinoma stage III
     Dosage: C3
     Dates: start: 20250429, end: 20250429
  6. CISPLATIN [Suspect]
     Active Substance: CISPLATIN
     Indication: Cervix carcinoma stage III
     Dosage: C4
     Dates: start: 20250506, end: 20250506

REACTIONS (17)
  - Toxic encephalopathy [Fatal]
  - Thrombocytopenia [Unknown]
  - Acute kidney injury [Unknown]
  - Acute pulmonary oedema [Unknown]
  - Urinary tract infection [Unknown]
  - Renal impairment [Unknown]
  - Urine odour abnormal [Unknown]
  - Radiation injury [Unknown]
  - Diarrhoea [Unknown]
  - General physical health deterioration [Unknown]
  - Acute pulmonary oedema [Unknown]
  - Metabolic acidosis [Unknown]
  - Dehydration [Unknown]
  - Cerebral ischaemia [Unknown]
  - Lumbar puncture [Unknown]
  - Nuchal rigidity [Unknown]
  - Inappropriate schedule of product administration [Unknown]

NARRATIVE: CASE EVENT DATE: 20250101
